FAERS Safety Report 26044001 (Version 2)
Quarter: 2025Q4

REPORT INFORMATION
  Report Type: Spontaneous
  Country: TW (occurrence: TW)
  Receive Date: 20251114
  Receipt Date: 20251121
  Transmission Date: 20260117
  Serious: Yes (Death, Life-Threatening, Other)
  Sender: MACLEODS
  Company Number: TW-MACLEODS PHARMA-MAC2025056314

PATIENT

DRUGS (1)
  1. LIDOCAINE [Suspect]
     Active Substance: LIDOCAINE
     Indication: Local anaesthesia
     Dosage: 20 ML OF 4% LIDOCAINE SOLUTION
     Route: 061

REACTIONS (11)
  - Death [Fatal]
  - Multiple organ dysfunction syndrome [Unknown]
  - Generalised tonic-clonic seizure [Unknown]
  - Cardiac arrest [Unknown]
  - Local anaesthetic systemic toxicity [Unknown]
  - Drug level increased [Unknown]
  - Muscle twitching [Unknown]
  - Haemodynamic instability [Unknown]
  - Toxicity to various agents [Unknown]
  - Loss of consciousness [Unknown]
  - Circulatory collapse [Unknown]
